FAERS Safety Report 6217416-3 (Version None)
Quarter: 2009Q2

REPORT INFORMATION
  Report Type: 
  Country: None (occurrence: None)
  Receive Date: 20090608
  Receipt Date: 20080923
  Transmission Date: 20091009
  Serious: No
  Sender: FDA-Public Use
  Company Number: A0749041A

PATIENT
  Age: 62 Year
  Sex: Male

DRUGS (2)
  1. WELLBUTRIN XL [Suspect]
     Indication: DEPRESSION
     Dosage: 450MG PER DAY
     Route: 048
     Dates: start: 20080913
  2. SEROQUEL [Concomitant]

REACTIONS (1)
  - AMNESIA [None]
